FAERS Safety Report 5380922-8 (Version None)
Quarter: 2007Q3

REPORT INFORMATION
  Report Type: 
  Country: None (occurrence: None)
  Receive Date: 20070706
  Receipt Date: 20070627
  Transmission Date: 20080115
  Serious: Yes (Hospitalization)
  Sender: FDA-Public Use
  Company Number: US-ELI_LILLY_AND_COMPANY-US200706003204

PATIENT
  Age: 66 Year
  Sex: Male

DRUGS (20)
  1. BYETTA [Suspect]
     Indication: TYPE 2 DIABETES MELLITUS
     Dosage: 5 UG, EACH MORNING
     Route: 058
     Dates: start: 20060602, end: 20060101
  2. BYETTA [Suspect]
     Dosage: 10 UG, EACH EVENING
     Route: 058
     Dates: start: 20060602, end: 20060101
  3. BYETTA [Suspect]
     Dosage: 10 UG, 2/D
     Route: 058
     Dates: start: 20060101, end: 20070605
  4. BYETTA [Suspect]
     Dosage: 10 UG, 2/D
     Route: 058
     Dates: start: 20070609
  5. AMARYL [Concomitant]
     Dosage: UNK, UNKNOWN
  6. PROTONIX [Concomitant]
  7. LANOXIN [Concomitant]
  8. SPIRONOLACTONE [Concomitant]
  9. NITRO-DUR [Concomitant]
  10. AMBIEN [Concomitant]
  11. ULTRAM [Concomitant]
  12. SINGULAIR [Concomitant]
  13. LASIX [Concomitant]
  14. TOPROL-XL [Concomitant]
  15. TEMAZEPAM [Concomitant]
  16. ALLOPURINOL [Concomitant]
  17. ALPRAZOLAM [Concomitant]
  18. ZETIA [Concomitant]
  19. COZAAR [Concomitant]
  20. COLACE [Concomitant]

REACTIONS (6)
  - BLOOD GLUCOSE DECREASED [None]
  - BLOOD GLUCOSE FLUCTUATION [None]
  - BLOOD GLUCOSE INCREASED [None]
  - CATARACT [None]
  - DRUG INEFFECTIVE [None]
  - MYOCARDIAL INFARCTION [None]
